FAERS Safety Report 25894359 (Version 1)
Quarter: 2025Q4

REPORT INFORMATION
  Report Type: Other
  Country: IN (occurrence: IN)
  Receive Date: 20251008
  Receipt Date: 20251008
  Transmission Date: 20260118
  Serious: Yes (Life-Threatening, Hospitalization, Other)
  Sender: APPCO PHARMA LLC
  Company Number: IN-Appco Pharma LLC-2186147

PATIENT
  Age: 26 Year
  Sex: Male

DRUGS (1)
  1. SILDENAFIL CITRATE [Suspect]
     Active Substance: SILDENAFIL CITRATE
     Indication: Substance use

REACTIONS (3)
  - Autoimmune haemolytic anaemia [Recovered/Resolved]
  - Intentional product misuse [Unknown]
  - Acute kidney injury [Recovered/Resolved]
